FAERS Safety Report 7726734-9 (Version None)
Quarter: 2011Q3

REPORT INFORMATION
  Report Type: 
  Country: None (occurrence: None)
  Receive Date: 20110902
  Receipt Date: 20110830
  Transmission Date: 20111222
  Serious: Yes (Other)
  Sender: FDA-Public Use
  Company Number: PHHY2011US66670

PATIENT
  Sex: Female

DRUGS (1)
  1. VIVELLE-DOT [Suspect]
     Dosage: 0.1 MG, BIW
     Route: 062

REACTIONS (4)
  - HOT FLUSH [None]
  - AGITATION [None]
  - DRUG INEFFECTIVE [None]
  - DEPRESSION [None]
